FAERS Safety Report 8143746-4 (Version None)
Quarter: 2012Q1

REPORT INFORMATION
  Report Type: 
  Country: None (occurrence: None)
  Receive Date: 20120217
  Receipt Date: 20120210
  Transmission Date: 20120608
  Serious: Yes (Hospitalization)
  Sender: FDA-Public Use
  Company Number: US-BAYER-2011-039220

PATIENT
  Age: 31 Year
  Sex: Female
  Weight: 146.94 kg

DRUGS (7)
  1. CLARITIN [Concomitant]
     Dosage: UNK
     Route: 048
     Dates: start: 20050816
  2. ORTHO TRI-CYCLEN [Concomitant]
     Dosage: UNK
     Dates: start: 19981101, end: 20050831
  3. YASMIN [Suspect]
     Dosage: UNK
     Dates: start: 20050801, end: 20051101
  4. LORAZEPAM [Concomitant]
     Indication: ANXIETY
     Dosage: 0.5 MG, UNK
     Dates: start: 20020101, end: 20051024
  5. ALBUTEROL [Concomitant]
     Indication: ASTHMA
     Dosage: 2 PUFFS, WHICH SHE IS USING THREE TO FOUR TIMES A DAY
     Route: 045
     Dates: start: 20051013, end: 20051102
  6. LORTAB [Concomitant]
     Indication: PAIN MANAGEMENT
     Dosage: UNK UNK, PRN
     Route: 048
     Dates: start: 20051013
  7. LORAZEPAM [Concomitant]
     Indication: DEPRESSION

REACTIONS (7)
  - HAEMATEMESIS [None]
  - EMOTIONAL DISTRESS [None]
  - HAEMOPTYSIS [None]
  - PAIN IN EXTREMITY [None]
  - DEEP VEIN THROMBOSIS [None]
  - PULMONARY EMBOLISM [None]
  - DYSPNOEA [None]
